FAERS Safety Report 4551121-4 (Version None)
Quarter: 2005Q1

REPORT INFORMATION
  Report Type: 
  Country: None (occurrence: None)
  Receive Date: 20050107
  Receipt Date: 20041222
  Transmission Date: 20050727
  Serious: Yes (Other)
  Sender: FDA-Public Use
  Company Number: 0204006

PATIENT
  Age: 63 Year
  Sex: Female

DRUGS (1)
  1. DEPODUR [Suspect]
     Indication: POST PROCEDURAL PAIN
     Dosage: 15 MG, ONCE, EPIDURAL
     Route: 008
     Dates: start: 20041201, end: 20041201

REACTIONS (2)
  - DEPRESSED LEVEL OF CONSCIOUSNESS [None]
  - POST PROCEDURAL COMPLICATION [None]
